FAERS Safety Report 25484345 (Version 2)
Quarter: 2025Q3

REPORT INFORMATION
  Report Type: Spontaneous
  Country: US (occurrence: US)
  Receive Date: 20250626
  Receipt Date: 20250921
  Transmission Date: 20251021
  Serious: No
  Sender: SANOFI AVENTIS
  Company Number: US-SA-2025SA179865

PATIENT
  Age: 47 Year
  Sex: Female

DRUGS (8)
  1. DUPIXENT [Suspect]
     Active Substance: DUPILUMAB
     Indication: Eczema
     Dosage: 300 MG, QOW
     Route: 058
     Dates: start: 202504
  2. FISH OIL [Concomitant]
     Active Substance: FISH OIL
  3. LOESTRIN NOS [Concomitant]
     Active Substance: ETHINYL ESTRADIOL\NORETHINDRONE ACETATE
  4. LISINOPRIL [Concomitant]
     Active Substance: LISINOPRIL
  5. DULOXETINE [Concomitant]
     Active Substance: DULOXETINE
  6. ZYRTEC [Concomitant]
     Active Substance: CETIRIZINE HYDROCHLORIDE
  7. WEGOVY [Concomitant]
     Active Substance: SEMAGLUTIDE
  8. REZDIFFRA [Concomitant]
     Active Substance: RESMETIROM

REACTIONS (4)
  - Dermatitis atopic [Unknown]
  - Injection site pain [Recovered/Resolved]
  - Product preparation error [Unknown]
  - Therapeutic response unexpected [Unknown]

NARRATIVE: CASE EVENT DATE: 20250101
